FAERS Safety Report 15780673 (Version 2)
Quarter: 2019Q1

REPORT INFORMATION
  Report Type: Spontaneous
  Country: PT (occurrence: PT)
  Receive Date: 20190102
  Receipt Date: 20190122
  Transmission Date: 20190417
  Serious: Yes (Life-Threatening, Hospitalization, Other)
  Sender: FDA-Public Use
  Company Number: PT-AUROBINDO-AUR-APL-2018-063759

PATIENT
  Age: 55 Year
  Sex: Female

DRUGS (1)
  1. PARACETAMOL [Suspect]
     Active Substance: ACETAMINOPHEN
     Indication: PAIN
     Dosage: 10 GRAM IN TOTAL
     Route: 048

REACTIONS (8)
  - Tachycardia [Unknown]
  - Cachexia [Unknown]
  - Metabolic acidosis [Recovering/Resolving]
  - Overdose [Unknown]
  - Pyroglutamate increased [Recovering/Resolving]
  - Toxicity to various agents [Unknown]
  - Kussmaul respiration [Recovering/Resolving]
  - Dyspnoea [Recovered/Resolved]
